FAERS Safety Report 15095727 (Version 1)
Quarter: 2018Q3

REPORT INFORMATION
  Report Type: Spontaneous
  Country: US (occurrence: US)
  Receive Date: 20180702
  Receipt Date: 20180702
  Transmission Date: 20181010
  Serious: No
  Sender: FDA-Public Use
  Company Number: US-BAYER-2018-118922

PATIENT
  Age: 74 Year
  Sex: Female
  Weight: 140 kg

DRUGS (2)
  1. ALEVE [Suspect]
     Active Substance: NAPROXEN SODIUM
     Dosage: 1 TABLET NIGHTLY
     Route: 048
  2. ALEVE BACK AND MUSCLE PAIN [Concomitant]
     Active Substance: NAPROXEN SODIUM
     Dosage: 1 TABLET DAILY
     Route: 048
     Dates: start: 20180619

REACTIONS (2)
  - Therapeutic response unexpected [Unknown]
  - Therapeutic response unexpected [Unknown]

NARRATIVE: CASE EVENT DATE: 20180619
